FAERS Safety Report 17824250 (Version 1)
Quarter: 2020Q2

REPORT INFORMATION
  Report Type: Spontaneous
  Country: US (occurrence: US)
  Receive Date: 20200526
  Receipt Date: 20200526
  Transmission Date: 20200714
  Serious: Yes (Hospitalization)
  Sender: FDA-Public Use
  Company Number: US-VERTEX PHARMACEUTICALS-2020-011301

PATIENT
  Age: 30 Year
  Sex: Female

DRUGS (17)
  1. CYCLOBENZAPRINE. [Concomitant]
     Active Substance: CYCLOBENZAPRINE
  2. NYSTATIN. [Concomitant]
     Active Substance: NYSTATIN
  3. DICYCLOMINE [Concomitant]
     Active Substance: DICYCLOMINE HYDROCHLORIDE
  4. TEMAZEPAM. [Concomitant]
     Active Substance: TEMAZEPAM
  5. PULMOZYME [Concomitant]
     Active Substance: DORNASE ALFA
  6. PRAZOSIN. [Concomitant]
     Active Substance: PRAZOSIN
  7. TOPIRAMATE. [Concomitant]
     Active Substance: TOPIRAMATE
  8. TOBRAMYCIN. [Concomitant]
     Active Substance: TOBRAMYCIN
  9. PARI [Concomitant]
  10. METOPROLOL. [Concomitant]
     Active Substance: METOPROLOL
  11. CLONAZEPAM. [Concomitant]
     Active Substance: CLONAZEPAM
  12. TRIKAFTA [Suspect]
     Active Substance: ELEXACAFTOR\IVACAFTOR\TEZACAFTOR
     Indication: CYSTIC FIBROSIS
     Dosage: 2 TABS (100 MG ELEXACAFTOR/ 50 MG TEZACAFTOR/ 75 MG IVACAFTOR) AM; 1 TAB (150MG IVACAFTOR) PM
     Route: 048
     Dates: start: 20191211
  13. GABAPENTIN. [Concomitant]
     Active Substance: GABAPENTIN
  14. PROMETHEGAN [Concomitant]
     Active Substance: PROMETHAZINE HYDROCHLORIDE
  15. REXULTI [Concomitant]
     Active Substance: BREXPIPRAZOLE
  16. DOXYCYCLINE. [Concomitant]
     Active Substance: DOXYCYCLINE
  17. TIZANIDINE. [Concomitant]
     Active Substance: TIZANIDINE

REACTIONS (3)
  - Dyspnoea [Unknown]
  - Cardiac arrest [Unknown]
  - Folliculitis [Not Recovered/Not Resolved]

NARRATIVE: CASE EVENT DATE: 201912
